FAERS Safety Report 6406729-8 (Version None)
Quarter: 2009Q4

REPORT INFORMATION
  Report Type: 
  Country: None (occurrence: None)
  Receive Date: 20091020
  Receipt Date: 20091015
  Transmission Date: 20100525
  Serious: Yes (Other)
  Sender: FDA-Public Use
  Company Number: US-TEVA-212507USA

PATIENT
  Sex: Male

DRUGS (2)
  1. ATENOLOL [Suspect]
     Route: 048
  2. GABAPENTIN [Concomitant]

REACTIONS (1)
  - ANAPHYLACTIC REACTION [None]
